FAERS Safety Report 14628383 (Version 1)
Quarter: 2018Q1

REPORT INFORMATION
  Report Type: Spontaneous
  Country: US (occurrence: US)
  Receive Date: 20180312
  Receipt Date: 20180312
  Transmission Date: 20180509
  Serious: No
  Sender: FDA-Public Use
  Company Number: US-MYLANLABS-2018M1013845

PATIENT
  Sex: Female
  Weight: 73.47 kg

DRUGS (1)
  1. ESTRADIOL TRANSDERMAL SYSTEM [Suspect]
     Active Substance: ESTRADIOL
     Indication: MENOPAUSAL SYMPTOMS
     Dosage: UNK UNK, QW
     Route: 062

REACTIONS (4)
  - Night sweats [Not Recovered/Not Resolved]
  - Product adhesion issue [Unknown]
  - Hot flush [Not Recovered/Not Resolved]
  - Drug ineffective [Unknown]
